FAERS Safety Report 10923330 (Version 1)
Quarter: 2015Q1

REPORT INFORMATION
  Report Type: Spontaneous
  Country: US (occurrence: US)
  Receive Date: 20150318
  Receipt Date: 20150318
  Transmission Date: 20150721
  Serious: Yes (Hospitalization)
  Sender: FDA-Public Use
  Company Number: US-GILEAD-2015-0142010

PATIENT
  Sex: Female
  Weight: 56.96 kg

DRUGS (2)
  1. ZYDELIG [Suspect]
     Active Substance: IDELALISIB
     Indication: CHRONIC LYMPHOCYTIC LEUKAEMIA
     Dosage: 150 MG, BID
     Route: 048
     Dates: start: 20140903, end: 20140919
  2. RITUXAN [Concomitant]
     Active Substance: RITUXIMAB
     Indication: CHRONIC LYMPHOCYTIC LEUKAEMIA
     Dosage: 589 MG, ONCE
     Route: 042
     Dates: start: 20140911, end: 20140911

REACTIONS (5)
  - Confusional state [Unknown]
  - Neck pain [Unknown]
  - Pyrexia [Unknown]
  - Fall [Unknown]
  - Anaemia [Unknown]
